FAERS Safety Report 6870143-1 (Version None)
Quarter: 2010Q3

REPORT INFORMATION
  Report Type: 
  Country: None (occurrence: None)
  Receive Date: 20100721
  Receipt Date: 20100706
  Transmission Date: 20110219
  Serious: Yes (Life-Threatening)
  Sender: FDA-Public Use
  Company Number: 640409

PATIENT
  Age: 47 Year
  Sex: Male

DRUGS (6)
  1. OXALIPLATIN [Suspect]
     Indication: NEOPLASM MALIGNANT
     Dosage: 120 MG MILLIGRAM(S), INTRAVENOUS
     Route: 042
     Dates: start: 20100603, end: 20100603
  2. (DEXAMETHASONE) [Concomitant]
  3. (FLUOROURACIL) [Concomitant]
  4. HYDROCORTISONE [Concomitant]
  5. METOCLOPRAMIDE [Concomitant]
  6. (PIRITON) [Concomitant]

REACTIONS (5)
  - BRONCHOSPASM [None]
  - CHEST DISCOMFORT [None]
  - DYSPHAGIA [None]
  - FLUSHING [None]
  - TACHYCARDIA [None]
